FAERS Safety Report 5421975-8 (Version None)
Quarter: 2007Q3

REPORT INFORMATION
  Report Type: 
  Country: None (occurrence: None)
  Receive Date: 20070822
  Receipt Date: 20070816
  Transmission Date: 20080115
  Serious: Yes (Death, Other)
  Sender: FDA-Public Use
  Company Number: PHBS2007TW13780

PATIENT
  Age: 56 Year
  Sex: Male

DRUGS (3)
  1. CYCLOSPORINE [Suspect]
     Indication: LIVER TRANSPLANT
     Route: 065
  2. CELLCEPT [Suspect]
     Indication: LIVER TRANSPLANT
     Route: 065
  3. PREDNISOLONE [Suspect]
     Indication: LIVER TRANSPLANT
     Route: 065

REACTIONS (7)
  - COUGH [None]
  - HEPATIC FAILURE [None]
  - IMMUNOSUPPRESSANT DRUG LEVEL DECREASED [None]
  - LIVER TRANSPLANT REJECTION [None]
  - LUNG DISORDER [None]
  - PULMONARY TUBERCULOSIS [None]
  - PYREXIA [None]
